FAERS Safety Report 10424017 (Version 2)
Quarter: 2014Q4

REPORT INFORMATION
  Report Type: Spontaneous
  Country: US (occurrence: None)
  Receive Date: 20140722
  Receipt Date: 20141020
  Transmission Date: 20150528
  Serious: No
  Sender: FDA-Public Use
  Company Number: AEGR000505

PATIENT
  Age: 66 Year
  Sex: Male

DRUGS (1)
  1. JUXTAPID [Suspect]
     Active Substance: LOMITAPIDE MESYLATE
     Indication: HYPERLIPIDAEMIA
     Route: 048

REACTIONS (3)
  - Weight decreased [None]
  - Off label use [None]
  - Product used for unknown indication [None]
